FAERS Safety Report 7469389-3 (Version None)
Quarter: 2011Q2

REPORT INFORMATION
  Report Type: 
  Country: None (occurrence: None)
  Receive Date: 20110510
  Receipt Date: 20110427
  Transmission Date: 20111010
  Serious: Yes (Hospitalization)
  Sender: FDA-Public Use
  Company Number: FR-PFIZER INC-2011090461

PATIENT
  Age: 38 Year
  Sex: Male

DRUGS (10)
  1. FORLAX [Concomitant]
     Dosage: UNK
     Dates: start: 20050422
  2. LEXOMIL [Concomitant]
     Dosage: UNK
     Dates: start: 20050422
  3. EFFERALGAN [Concomitant]
     Dosage: UNK
     Dates: start: 20050422
  4. RAPAMUNE [Suspect]
     Indication: IMMUNOSUPPRESSANT DRUG THERAPY
     Dosage: 7 MG, UNK
     Route: 048
     Dates: start: 20040928, end: 20050317
  5. EUPRESSYL [Concomitant]
     Dosage: 60 MG, 1X/DAY
     Dates: start: 20050422
  6. PROGRAF [Concomitant]
     Dosage: 4 MG, 1X/DAY
     Dates: start: 20050422
  7. SKENAN [Concomitant]
     Dosage: 160 MG, 1X/DAY
     Dates: start: 20050422
  8. LOVENOX [Concomitant]
     Dosage: UNK
     Dates: start: 20050422
  9. CELL CEPT [Concomitant]
     Dosage: 1 G, 1X/DAY
     Dates: start: 20050422
  10. SODIUM BICARBONATE [Concomitant]
     Dosage: UNK
     Dates: start: 20050422

REACTIONS (4)
  - ESCHAR [None]
  - PYREXIA [None]
  - HERNIAL EVENTRATION [None]
  - ANAEMIA [None]
